FAERS Safety Report 14779281 (Version 1)
Quarter: 2018Q2

REPORT INFORMATION
  Report Type: Report from Study
  Country: US (occurrence: US)
  Receive Date: 20180419
  Receipt Date: 20180419
  Transmission Date: 20180711
  Serious: Yes (Hospitalization)
  Sender: FDA-Public Use
  Company Number: US-BAYER-2017-034721

PATIENT
  Age: 54 Year
  Sex: Female

DRUGS (3)
  1. LYRICA [Suspect]
     Active Substance: PREGABALIN
  2. MILNACIPRAN HYDROCHLORIDE. [Suspect]
     Active Substance: MILNACIPRAN HYDROCHLORIDE
  3. BETASERON [Suspect]
     Active Substance: INTERFERON BETA-1B
     Indication: MULTIPLE SCLEROSIS
     Dosage: 0.25 MG, QOD, STRENGTH: 0.3 MG
     Route: 058
     Dates: start: 20150610

REACTIONS (4)
  - Influenza like illness [None]
  - Blood phosphorus decreased [None]
  - Pain in extremity [Recovered/Resolved]
  - Dehydration [None]

NARRATIVE: CASE EVENT DATE: 20180222
